FAERS Safety Report 9528658 (Version 1)
Quarter: 2013Q3

REPORT INFORMATION
  Report Type: Report from Study
  Country: NO (occurrence: NO)
  Receive Date: 20130917
  Receipt Date: 20130917
  Transmission Date: 20140515
  Serious: Yes (Hospitalization)
  Sender: FDA-Public Use
  Company Number: NO-MERCK-1309NOR005445

PATIENT
  Age: 22 Year
  Sex: Male
  Weight: 76 kg

DRUGS (3)
  1. PEGINTERFERON ALFA-2B [Suspect]
     Indication: HEPATITIS C
     Dosage: 120 MICROGRAM, QW
     Route: 058
     Dates: start: 20130704
  2. RIBAVIRIN [Suspect]
     Indication: HEPATITIS C
     Dosage: 400 MG+600 MG QD
     Route: 048
     Dates: start: 20130704
  3. SUBOXONE [Concomitant]
     Indication: DRUG WITHDRAWAL SYNDROME
     Dosage: 6 MG X 1; FREQUENCY UNKNOWN
     Dates: start: 20130816

REACTIONS (1)
  - Adverse event [Recovering/Resolving]
